FAERS Safety Report 4873150-3 (Version None)
Quarter: 2006Q1

REPORT INFORMATION
  Report Type: 
  Country: None (occurrence: None)
  Receive Date: 20060105
  Receipt Date: 20051227
  Transmission Date: 20060701
  Serious: Yes (Disabling)
  Sender: FDA-Public Use
  Company Number: JP-JPN-A20053206

PATIENT
  Age: 75 Year
  Sex: Male
  Weight: 65 kg

DRUGS (12)
  1. VALTREX [Suspect]
     Indication: HERPES ZOSTER
     Dosage: 1000MG PER DAY
     Route: 048
     Dates: start: 20051219, end: 20051221
  2. NIFELANTERN CR [Concomitant]
     Indication: HYPERTENSION
     Dosage: 20MG TWICE PER DAY
     Route: 048
     Dates: start: 20050718
  3. ASPIRIN [Concomitant]
     Dosage: 100MG PER DAY
     Route: 048
  4. ROCALTOROL [Concomitant]
     Dosage: .5MCG PER DAY
     Route: 048
     Dates: start: 20050822
  5. HATSKER [Concomitant]
     Dosage: 150MG PER DAY
     Route: 048
  6. HALCION [Concomitant]
     Dosage: .125MG PER DAY
     Route: 048
  7. YODEL S [Concomitant]
     Dosage: 240MG PER DAY
     Route: 048
  8. RENAGEL [Concomitant]
     Dosage: 1G THREE TIMES PER DAY
     Route: 048
  9. MUCOSTA [Concomitant]
     Dosage: 100MG THREE TIMES PER DAY
     Route: 048
  10. BIOFERMIN [Concomitant]
     Dosage: 1G THREE TIMES PER DAY
     Route: 048
  11. GLAKAY [Concomitant]
     Dosage: 15MG THREE TIMES PER DAY
     Route: 048
  12. ZOVIRAX [Concomitant]
     Indication: HERPES ZOSTER
     Route: 061
     Dates: start: 20051219

REACTIONS (12)
  - ABNORMAL BEHAVIOUR [None]
  - AFFECT LABILITY [None]
  - BLOOD PRESSURE INCREASED [None]
  - COORDINATION ABNORMAL [None]
  - DELIRIUM [None]
  - DYSAESTHESIA [None]
  - FEELING HOT [None]
  - HALLUCINATION [None]
  - PUPILLARY REFLEX IMPAIRED [None]
  - SPEECH DISORDER [None]
  - VISUAL DISTURBANCE [None]
  - VOMITING [None]
